FAERS Safety Report 13640099 (Version 1)
Quarter: 2017Q2

REPORT INFORMATION
  Report Type: Spontaneous
  Country: US (occurrence: US)
  Receive Date: 20170609
  Receipt Date: 20170609
  Transmission Date: 20170830
  Serious: No
  Sender: FDA-Public Use
  Company Number: US-ROCHE-1442177

PATIENT
  Sex: Female

DRUGS (1)
  1. KLONOPIN [Suspect]
     Active Substance: CLONAZEPAM
     Indication: ANXIETY DISORDER
     Dosage: 1 MG IN THE MORNING AND 0.5 MG AT NIGHT
     Route: 065

REACTIONS (1)
  - Gastric disorder [Unknown]
